FAERS Safety Report 23290286 (Version 4)
Quarter: 2024Q1

REPORT INFORMATION
  Report Type: Spontaneous
  Country: NL (occurrence: NL)
  Receive Date: 20231213
  Receipt Date: 20240118
  Transmission Date: 20240410
  Serious: Yes (Disabling)
  Sender: FDA-Public Use
  Company Number: NL-LRB-00930929

PATIENT
  Age: 56 Year
  Sex: Female
  Weight: 70 kg

DRUGS (6)
  1. TAMOXIFEN CITRATE [Suspect]
     Active Substance: TAMOXIFEN CITRATE
     Indication: Invasive lobular breast carcinoma
     Dosage: 1 DOSAGE FORM, ONCE A DAY
     Route: 065
     Dates: start: 20200701
  2. FINGOLIMOD [Suspect]
     Active Substance: FINGOLIMOD
     Indication: Multiple sclerosis
     Dosage: 0.25 MILLIGRAM, ONCE A DAY
     Route: 065
     Dates: start: 20210616
  3. GILENYA [Suspect]
     Active Substance: FINGOLIMOD HYDROCHLORIDE
     Indication: Multiple sclerosis
     Dosage: 0.25 MILLIGRAMS, QDMEDICINE PRESCRIBED BY DOCTOR: YES
     Route: 065
     Dates: start: 20210616
  4. LEUPROLIDE ACETATE [Suspect]
     Active Substance: LEUPROLIDE ACETATE
     Indication: Prophylaxis
     Dosage: ONCE EVERY 3 MONTHS
     Route: 065
     Dates: start: 20210116
  5. LEUPROLIDE ACETATE [Suspect]
     Active Substance: LEUPROLIDE ACETATE
     Indication: Prophylaxis
     Dosage: UNK UNK, Q3MONTHS MEDICINE PRESCRIBED BY DOCTOR: YES
     Route: 065
     Dates: start: 20210116
  6. POLYETHYLENE GLYCOLS [Concomitant]
     Active Substance: POLYETHYLENE GLYCOLS
     Indication: Product used for unknown indication
     Dosage: UNK
     Route: 065

REACTIONS (4)
  - Small fibre neuropathy [Recovering/Resolving]
  - Hair disorder [Recovering/Resolving]
  - Paraesthesia [Recovering/Resolving]
  - Rash erythematous [Recovering/Resolving]
